FAERS Safety Report 9292226 (Version 2)
Quarter: 2013Q2

REPORT INFORMATION
  Report Type: Spontaneous
  Country: US (occurrence: US)
  Receive Date: 20130516
  Receipt Date: 20130610
  Transmission Date: 20140414
  Serious: No
  Sender: FDA-Public Use
  Company Number: US-BAYER-2013-060879

PATIENT
  Age: 67 Year
  Sex: Female
  Weight: 102.4 kg

DRUGS (3)
  1. ALEVE TABLET [Suspect]
     Dosage: 2 DF, PRN
     Route: 048
     Dates: start: 2010
  2. TRAMADOL [Concomitant]
  3. FISH OIL [Concomitant]

REACTIONS (3)
  - Reaction to drug excipients [None]
  - Throat irritation [Recovered/Resolved]
  - Epigastric discomfort [None]
